FAERS Safety Report 11347161 (Version 1)
Quarter: 2015Q3

REPORT INFORMATION
  Report Type: Spontaneous
  Country: CA (occurrence: CA)
  Receive Date: 20150806
  Receipt Date: 20150806
  Transmission Date: 20151125
  Serious: Yes (Other)
  Sender: FDA-Public Use
  Company Number: CA-MYLANLABS-2015M1026081

PATIENT

DRUGS (2)
  1. BUPIVACAINE [Suspect]
     Active Substance: BUPIVACAINE
     Indication: JOINT ARTHROPLASTY
     Dosage: 0.25%
     Route: 014
  2. EPINEPHRINE. [Suspect]
     Active Substance: EPINEPHRINE
     Indication: JOINT ARTHROPLASTY
     Route: 014

REACTIONS (1)
  - Chondrolysis [Unknown]
